FAERS Safety Report 13992283 (Version 2)
Quarter: 2017Q4

REPORT INFORMATION
  Report Type: Spontaneous
  Country: US (occurrence: US)
  Receive Date: 20170920
  Receipt Date: 20171123
  Transmission Date: 20180321
  Serious: No
  Sender: FDA-Public Use
  Company Number: US-JNJFOC-20170906272

PATIENT
  Sex: Male

DRUGS (9)
  1. RISPERDAL [Suspect]
     Active Substance: RISPERIDONE
     Indication: AGITATION
     Dosage: IN VARYING DOSE OF 0.5 MG TO 1 MG ONCE A DAY TO THRICE A DAY
     Route: 048
     Dates: start: 20050713, end: 20060321
  2. INVEGA [Suspect]
     Active Substance: PALIPERIDONE
     Indication: IMPULSE-CONTROL DISORDER
     Route: 048
     Dates: start: 20150224, end: 20150608
  3. INVEGA [Suspect]
     Active Substance: PALIPERIDONE
     Indication: AUTISM SPECTRUM DISORDER
     Route: 048
     Dates: start: 20150224, end: 20150608
  4. RISPERDAL [Suspect]
     Active Substance: RISPERIDONE
     Indication: OPPOSITIONAL DEFIANT DISORDER
     Dosage: IN VARYING DOSE OF 0.5 MG TO 1 MG ONCE A DAY TO THRICE A DAY
     Route: 048
     Dates: start: 20050713, end: 20060321
  5. RISPERDAL [Suspect]
     Active Substance: RISPERIDONE
     Indication: ATTENTION DEFICIT/HYPERACTIVITY DISORDER
     Dosage: IN VARYING DOSE OF 0.5 MG TO 1 MG ONCE A DAY TO THRICE A DAY
     Route: 048
     Dates: start: 20050713, end: 20060321
  6. RISPERDAL [Suspect]
     Active Substance: RISPERIDONE
     Indication: AUTISM SPECTRUM DISORDER
     Dosage: IN VARYING DOSE OF 0.5 MG TO 1 MG ONCE A DAY TO THRICE A DAY
     Route: 048
     Dates: start: 20050713, end: 20060321
  7. RISPERDAL [Suspect]
     Active Substance: RISPERIDONE
     Indication: IMPULSE-CONTROL DISORDER
     Dosage: IN VARYING DOSE OF 0.5 MG TO 1 MG ONCE A DAY TO THRICE A DAY
     Route: 048
     Dates: start: 20050713, end: 20060321
  8. INVEGA [Suspect]
     Active Substance: PALIPERIDONE
     Indication: OPPOSITIONAL DEFIANT DISORDER
     Route: 048
     Dates: start: 20150224, end: 20150608
  9. INVEGA [Suspect]
     Active Substance: PALIPERIDONE
     Indication: ATTENTION DEFICIT/HYPERACTIVITY DISORDER
     Route: 048
     Dates: start: 20150224, end: 20150608

REACTIONS (2)
  - Gynaecomastia [Unknown]
  - Emotional disorder [Unknown]
